FAERS Safety Report 12178089 (Version 1)
Quarter: 2016Q1

REPORT INFORMATION
  Report Type: Spontaneous
  Country: US (occurrence: None)
  Receive Date: 20160314
  Receipt Date: 20160314
  Transmission Date: 20160526
  Serious: No
  Sender: FDA-Public Use
  Company Number: None

PATIENT
  Sex: Female

DRUGS (1)
  1. PHENTERMINE. [Suspect]
     Active Substance: PHENTERMINE

REACTIONS (2)
  - Constipation [None]
  - Ultrasound scan abnormal [None]
